FAERS Safety Report 8465717-0 (Version None)
Quarter: 2012Q2

REPORT INFORMATION
  Report Type: 
  Country: None (occurrence: None)
  Receive Date: 20120626
  Receipt Date: 20120618
  Transmission Date: 20120825
  Serious: Yes (Hospitalization, Other)
  Sender: FDA-Public Use
  Company Number: US-BAYER-2012-061020

PATIENT
  Age: 24 Year
  Sex: Female

DRUGS (7)
  1. DROSPIRENONE AND ETHINYL ESTRADIOL [Suspect]
  2. ORAL CONTRACEPTIVE NOS [Concomitant]
     Indication: MENSTRUATION IRREGULAR
  3. IBUPROFEN [Concomitant]
     Dosage: PRN
  4. BEYAZ [Suspect]
  5. YAZ [Suspect]
  6. METFORMIN HCL [Concomitant]
     Dosage: 500 MG, UNK
  7. IBUPROFEN (ADVIL) [Concomitant]

REACTIONS (2)
  - THROMBOSIS [None]
  - DEEP VEIN THROMBOSIS [None]
